FAERS Safety Report 26179037 (Version 1)
Quarter: 2025Q4

REPORT INFORMATION
  Report Type: Spontaneous
  Country: EU (occurrence: EU)
  Receive Date: 20251219
  Receipt Date: 20251219
  Transmission Date: 20260118
  Serious: Yes (Hospitalization, Other)
  Sender: RANBAXY
  Company Number: EU-MINISAL02-1057340

PATIENT
  Age: 61 Year
  Sex: Female

DRUGS (1)
  1. OXALIPLATIN [Suspect]
     Active Substance: OXALIPLATIN
     Indication: Prophylactic chemotherapy
     Dosage: 100 MILLIGRAM/SQ. METER, UNK, 100 MG/M2 GG1-14 ASSOCIATED WITH 5FU
     Route: 065
     Dates: start: 20250826, end: 20250909

REACTIONS (5)
  - Infusion related reaction [Recovered/Resolved]
  - Rash maculo-papular [Recovered/Resolved]
  - Abdominal pain upper [Recovering/Resolving]
  - Malaise [Recovering/Resolving]
  - Nausea [Recovering/Resolving]

NARRATIVE: CASE EVENT DATE: 20250909
